FAERS Safety Report 8909505 (Version 1)
Quarter: 2012Q4

REPORT INFORMATION
  Report Type: Spontaneous
  Country: US (occurrence: None)
  Receive Date: 20121109
  Receipt Date: 20121109
  Transmission Date: 20130627
  Serious: Yes (Other)
  Sender: FDA-Public Use
  Company Number: 2012-003907

PATIENT
  Age: 86 Year
  Sex: Female

DRUGS (7)
  1. ACTONEL (RISEDRONATE SODIUM) TABLET, 35MG [Suspect]
     Indication: OSTEOPOROSIS
     Route: 048
     Dates: start: 2005
  2. ACTONEL (RISEDRONATE SODIUM) TABLET, 35MG [Suspect]
     Indication: JOINT PAIN
     Route: 048
     Dates: start: 2005
  3. GLUCOSAMINE (GLUCOSAMINE) [Concomitant]
  4. CALCIUM (CALCIUM) [Concomitant]
  5. POTASSIUM (POTASSIUM) [Concomitant]
  6. MULTIVIT (VITAMINS NOS) [Concomitant]
  7. ASPIRIN (ACETYLSALICYLIC ACID) [Concomitant]

REACTIONS (2)
  - Arthropathy [None]
  - Joint dislocation [None]
